FAERS Safety Report 5646628-2 (Version None)
Quarter: 2008Q1

REPORT INFORMATION
  Report Type: 
  Country: None (occurrence: None)
  Receive Date: 20080303
  Receipt Date: 20080220
  Transmission Date: 20080703
  Serious: Yes (Hospitalization)
  Sender: FDA-Public Use
  Company Number: PHBS2008DK02564

PATIENT
  Sex: Female

DRUGS (3)
  1. LEPONEX [Suspect]
     Indication: ACCIDENTAL EXPOSURE
     Dosage: 1500 MG, ONCE/SINGLE
     Route: 048
  2. EFEXOR                                  /BEL/ [Concomitant]
  3. SEROQUEL [Concomitant]

REACTIONS (2)
  - ACCIDENTAL EXPOSURE [None]
  - DRUG EXPOSURE DURING PREGNANCY [None]
